FAERS Safety Report 13517860 (Version 1)
Quarter: 2017Q2

REPORT INFORMATION
  Report Type: Report from Study
  Country: GB (occurrence: GB)
  Receive Date: 20170505
  Receipt Date: 20170505
  Transmission Date: 20170830
  Serious: Yes (Other)
  Sender: FDA-Public Use
  Company Number: GB-MYLANLABS-2017M1026957

PATIENT

DRUGS (3)
  1. KIVEXA [Concomitant]
     Active Substance: ABACAVIR SULFATE\LAMIVUDINE
     Indication: HIV INFECTION
     Route: 065
  2. DARUNAVIR W/RITONAVIR [Interacting]
     Active Substance: DARUNAVIR\RITONAVIR
     Indication: HIV INFECTION
     Route: 065
  3. PREDNISOLONE. [Suspect]
     Active Substance: PREDNISOLONE
     Indication: HIV INFECTION
     Route: 065

REACTIONS (2)
  - Cushing^s syndrome [Unknown]
  - Drug interaction [Unknown]
